FAERS Safety Report 8926226 (Version 1)
Quarter: 2012Q4

REPORT INFORMATION
  Report Type: 
  Country: US (occurrence: US)
  Receive Date: 20121126
  Receipt Date: 20121126
  Transmission Date: 20130627
  Serious: No
  Sender: FDA-Public Use
  Company Number: US-009507513-1211USA010064

PATIENT
  Sex: Female

DRUGS (2)
  1. EMEND [Suspect]
     Indication: VOMITING
     Dosage: 150 mg every 4 weeks
     Route: 042
     Dates: end: 2012
  2. EMEND [Suspect]
     Indication: NAUSEA

REACTIONS (1)
  - Back pain [Recovered/Resolved]
